FAERS Safety Report 23242750 (Version 1)
Quarter: 2023Q4

REPORT INFORMATION
  Report Type: Spontaneous
  Country: US (occurrence: US)
  Receive Date: 20231129
  Receipt Date: 20231129
  Transmission Date: 20240110
  Serious: Yes (Other)
  Sender: FDA-Public Use
  Company Number: US-BAUSCHBL-2023BNL012200

PATIENT
  Sex: Male

DRUGS (1)
  1. MIEBO [Suspect]
     Active Substance: PERFLUOROHEXYLOCTANE
     Indication: Product used for unknown indication
     Dosage: USED IT 4-5 DAYS
     Route: 065

REACTIONS (4)
  - Punctate keratitis [Unknown]
  - Visual impairment [Unknown]
  - Burning sensation [Unknown]
  - Vision blurred [Unknown]
